FAERS Safety Report 13501388 (Version 2)
Quarter: 2017Q4

REPORT INFORMATION
  Report Type: Spontaneous
  Country: US (occurrence: US)
  Receive Date: 20170501
  Receipt Date: 20171027
  Transmission Date: 20180320
  Serious: No
  Sender: FDA-Public Use
  Company Number: US-ROCHE-1874629

PATIENT
  Age: 70 Year
  Sex: Female

DRUGS (1)
  1. ESBRIET [Suspect]
     Active Substance: PIRFENIDONE
     Indication: ILL-DEFINED DISORDER
     Route: 048
     Dates: start: 20160106

REACTIONS (2)
  - Abdominal discomfort [Unknown]
  - Pain [Unknown]

NARRATIVE: CASE EVENT DATE: 20161201
